FAERS Safety Report 6788360-8 (Version None)
Quarter: 2010Q2

REPORT INFORMATION
  Report Type: 
  Country: None (occurrence: None)
  Receive Date: 20100623
  Receipt Date: 20080508
  Transmission Date: 20101027
  Serious: Yes (Other)
  Sender: FDA-Public Use
  Company Number: US-PFIZER INC-2008014860

PATIENT
  Sex: Male
  Weight: 81.65 kg

DRUGS (12)
  1. GEODON [Suspect]
     Indication: BIPOLAR DISORDER
     Route: 048
     Dates: start: 20041001, end: 20070101
  2. GEODON [Suspect]
     Indication: BIPOLAR II DISORDER
  3. WELLBUTRIN [Suspect]
     Indication: MOOD ALTERED
     Dosage: 150
  4. WELLBUTRIN [Suspect]
     Indication: DEPRESSION
  5. TRICOR [Concomitant]
     Indication: BLOOD CHOLESTEROL INCREASED
  6. LIPITOR [Concomitant]
     Indication: BLOOD CHOLESTEROL INCREASED
  7. ZETIA [Concomitant]
     Indication: BLOOD CHOLESTEROL INCREASED
  8. ATENOLOL [Concomitant]
  9. KLONOPIN [Concomitant]
     Indication: SLEEP DISORDER
  10. RANITIDINE [Concomitant]
  11. LOPERAMIDE [Concomitant]
  12. RITALIN [Concomitant]

REACTIONS (7)
  - AKATHISIA [None]
  - DECREASED APPETITE [None]
  - DEPRESSION [None]
  - DRY MOUTH [None]
  - MOOD ALTERED [None]
  - TARDIVE DYSKINESIA [None]
  - WEIGHT DECREASED [None]
